FAERS Safety Report 6464777-6 (Version None)
Quarter: 2009Q4

REPORT INFORMATION
  Report Type: 
  Country: None (occurrence: None)
  Receive Date: 20091201
  Receipt Date: 20091118
  Transmission Date: 20100525
  Serious: Yes (Other)
  Sender: FDA-Public Use
  Company Number: PHHY2009CO49149

PATIENT
  Age: 16 Year
  Sex: Female

DRUGS (1)
  1. IMATINIB [Suspect]
     Indication: CHRONIC MYELOID LEUKAEMIA
     Dosage: 400 MG/DAY

REACTIONS (9)
  - BRAIN NATRIURETIC PEPTIDE INCREASED [None]
  - CARDIAC FAILURE [None]
  - CONGESTIVE CARDIOMYOPATHY [None]
  - DYSPNOEA EXERTIONAL [None]
  - GALLOP RHYTHM PRESENT [None]
  - HEPATIC CONGESTION [None]
  - OEDEMA PERIPHERAL [None]
  - ORTHOPNOEA [None]
  - VITAL FUNCTIONS ABNORMAL [None]
